FAERS Safety Report 20376940 (Version 4)
Quarter: 2022Q2

REPORT INFORMATION
  Report Type: Spontaneous
  Country: JP (occurrence: JP)
  Receive Date: 20220125
  Receipt Date: 20220527
  Transmission Date: 20220721
  Serious: Yes (Other)
  Sender: FDA-Public Use
  Company Number: JP-DSJP-DSJ-2021-141391

PATIENT
  Age: 61 Year
  Sex: Male
  Weight: 46 kg

DRUGS (10)
  1. ENHERTU [Suspect]
     Active Substance: FAM-TRASTUZUMAB DERUXTECAN-NXKI
     Indication: HER2 positive gastric cancer
     Dosage: 6.4 MG/KG, ONCE EVERY 3 WK
     Route: 041
     Dates: start: 20201228, end: 20201228
  2. ENHERTU [Suspect]
     Active Substance: FAM-TRASTUZUMAB DERUXTECAN-NXKI
     Dosage: 5.4 MG/KG, ONCE EVERY 3 WK
     Route: 041
     Dates: start: 20210126, end: 20210126
  3. ENHERTU [Suspect]
     Active Substance: FAM-TRASTUZUMAB DERUXTECAN-NXKI
     Dosage: 4.0 MG/KG, ONCE EVERY 3 WK
     Route: 041
     Dates: start: 20210302, end: 20210302
  4. ENHERTU [Suspect]
     Active Substance: FAM-TRASTUZUMAB DERUXTECAN-NXKI
     Dosage: 4.0 MG/KG, ONCE EVERY 3 WK
     Route: 041
     Dates: start: 20210323, end: 20210323
  5. ENHERTU [Suspect]
     Active Substance: FAM-TRASTUZUMAB DERUXTECAN-NXKI
     Dosage: 4.4 MG/KG, ONCE EVERY 3 WK
     Route: 041
     Dates: start: 20210414, end: 20210414
  6. ENHERTU [Suspect]
     Active Substance: FAM-TRASTUZUMAB DERUXTECAN-NXKI
     Dosage: 4 MG/KG, ONCE EVERY 3 WK
     Route: 041
     Dates: start: 20210526, end: 20210526
  7. ENHERTU [Suspect]
     Active Substance: FAM-TRASTUZUMAB DERUXTECAN-NXKI
     Dosage: 4 MG/KG, ONCE EVERY 3 WK
     Route: 041
     Dates: start: 20210630, end: 20210630
  8. ENHERTU [Suspect]
     Active Substance: FAM-TRASTUZUMAB DERUXTECAN-NXKI
     Dosage: 4 MG/KG, ONCE EVERY 3 WK
     Route: 041
     Dates: start: 20210721, end: 20210721
  9. EGFR INHIBITORS [Concomitant]
     Dosage: UNK
     Route: 065
     Dates: start: 20210901, end: 20211001
  10. IRINOTECAN [Concomitant]
     Active Substance: IRINOTECAN
     Dosage: UNK
     Route: 065
     Dates: start: 20220202

REACTIONS (3)
  - Myelosuppression [Recovered/Resolved]
  - Hepatic function abnormal [Unknown]
  - Disease progression [Unknown]

NARRATIVE: CASE EVENT DATE: 20210203
